FAERS Safety Report 7288712-6 (Version None)
Quarter: 2011Q1

REPORT INFORMATION
  Report Type: 
  Country: None (occurrence: None)
  Receive Date: 20110211
  Receipt Date: 20110201
  Transmission Date: 20110831
  Serious: Yes (Other)
  Sender: FDA-Public Use
  Company Number: PHHY2011DE09011

PATIENT
  Age: 19 Year
  Sex: Female

DRUGS (2)
  1. RITALIN [Suspect]
     Indication: ATTENTION DEFICIT/HYPERACTIVITY DISORDER
     Route: 048
  2. MARCUMAR [Interacting]
     Indication: THROMBOSIS

REACTIONS (3)
  - DRUG INTERACTION [None]
  - THROMBOSIS [None]
  - INTERNATIONAL NORMALISED RATIO FLUCTUATION [None]
